FAERS Safety Report 14366569 (Version 4)
Quarter: 2018Q1

REPORT INFORMATION
  Report Type: Report from Study
  Country: US (occurrence: US)
  Receive Date: 20180109
  Receipt Date: 20180122
  Transmission Date: 20180509
  Serious: Yes (Death, Life-Threatening, Hospitalization, Disabling)
  Sender: FDA-Public Use
  Company Number: US-EISAI MEDICAL RESEARCH-EC-2018-034804

PATIENT
  Age: 8 Year
  Sex: Male
  Weight: 24.8 kg

DRUGS (2)
  1. EVEROLIMUS. [Suspect]
     Active Substance: EVEROLIMUS
     Indication: EWING^S SARCOMA
     Route: 048
     Dates: start: 20171207, end: 20171230
  2. LENVATINIB [Suspect]
     Active Substance: LENVATINIB
     Indication: EWING^S SARCOMA
     Route: 048
     Dates: start: 20171207, end: 20171230

REACTIONS (5)
  - Pain in extremity [Not Recovered/Not Resolved]
  - Back pain [Not Recovered/Not Resolved]
  - Respiratory failure [Fatal]
  - Pneumothorax [Recovered/Resolved]
  - Hypoxia [Not Recovered/Not Resolved]

NARRATIVE: CASE EVENT DATE: 20180102
